FAERS Safety Report 21556856 (Version 3)
Quarter: 2022Q4

REPORT INFORMATION
  Report Type: Report from Study
  Country: CN (occurrence: CN)
  Receive Date: 20221104
  Receipt Date: 20221118
  Transmission Date: 20230113
  Serious: Yes (Hospitalization)
  Sender: FDA-Public Use
  Company Number: CN-JNJFOC-20221058944

PATIENT
  Age: 58 Year
  Sex: Male
  Weight: 57 kg

DRUGS (19)
  1. DARATUMUMAB [Suspect]
     Active Substance: DARATUMUMAB
     Indication: Plasma cell myeloma refractory
     Dosage: MOST RECENT DOSE ADMINISTERED ON 21-0CT-/2022
     Route: 058
     Dates: start: 20221014
  2. FLURBIPROFEN [Concomitant]
     Active Substance: FLURBIPROFEN
     Indication: Plasma cell myeloma
     Route: 061
     Dates: start: 20221008
  3. FEBUXOSTAT [Concomitant]
     Active Substance: FEBUXOSTAT
     Indication: Hyperuricaemia
     Route: 048
     Dates: start: 20221027
  4. FEBUXOSTAT [Concomitant]
     Active Substance: FEBUXOSTAT
     Indication: Prophylaxis
     Route: 048
     Dates: start: 20221003, end: 20221016
  5. BACILLUS SUBTILIS;ENTEROCOCCUS FAECIUM [Concomitant]
     Indication: Diarrhoea
     Route: 048
     Dates: start: 20221027, end: 20221105
  6. MONTMORILLONITE [Concomitant]
     Active Substance: MONTMORILLONITE
     Indication: Diarrhoea
     Route: 048
     Dates: start: 20221027, end: 20221031
  7. SACCHAROMYCES CEREVISIAE [Concomitant]
     Active Substance: SACCHAROMYCES CEREVISIAE
     Indication: Diarrhoea
     Route: 048
     Dates: start: 20221027, end: 20221105
  8. CEFOPERAZONE SODIUM\SULBACTAM SODIUM [Concomitant]
     Active Substance: CEFOPERAZONE SODIUM\SULBACTAM SODIUM
     Indication: Diarrhoea
     Route: 042
     Dates: start: 20221027
  9. SODIUM BICARBONATE [Concomitant]
     Active Substance: SODIUM BICARBONATE
     Indication: Prophylaxis
     Route: 042
     Dates: start: 20221027, end: 20221027
  10. FUROSEMIDE [Concomitant]
     Active Substance: FUROSEMIDE
     Indication: Blood creatinine increased
     Route: 042
     Dates: start: 20221027, end: 20221027
  11. FUROSEMIDE [Concomitant]
     Active Substance: FUROSEMIDE
     Route: 042
     Dates: start: 20221008, end: 20221009
  12. GRANULOCYTE COLONY-STIMULATING FACTOR NOS [Concomitant]
     Active Substance: GRANULOCYTE COLONY-STIMULATING FACTOR NOS
     Indication: Neutrophil count decreased
     Route: 058
     Dates: start: 20221027, end: 20221027
  13. GRANULOCYTE COLONY-STIMULATING FACTOR NOS [Concomitant]
     Active Substance: GRANULOCYTE COLONY-STIMULATING FACTOR NOS
     Route: 058
     Dates: start: 20221028, end: 20221028
  14. ALBUMIN HUMAN [Concomitant]
     Active Substance: ALBUMIN HUMAN
     Indication: Prophylaxis
     Route: 042
     Dates: start: 20221027, end: 20221027
  15. GLUTATHIONE [Concomitant]
     Active Substance: GLUTATHIONE
     Indication: Prophylaxis
     Route: 042
     Dates: start: 20221004, end: 20221015
  16. UREMIC CLEARANCE [Concomitant]
     Indication: Blood creatinine increased
     Dosage: GRANULE
     Route: 048
     Dates: start: 20221005
  17. COATED ALDEHYDE OXYSTARCH [Concomitant]
     Indication: Blood creatinine increased
     Route: 048
     Dates: start: 20221006
  18. TOLVAPTAN [Concomitant]
     Active Substance: TOLVAPTAN
     Indication: Blood creatinine increased
     Route: 048
     Dates: start: 20221008
  19. CALCIUM DOBESILATE [Concomitant]
     Active Substance: CALCIUM DOBESILATE
     Indication: Blood creatinine increased
     Route: 048
     Dates: start: 20221010

REACTIONS (1)
  - Hydrothorax [Not Recovered/Not Resolved]

NARRATIVE: CASE EVENT DATE: 20221027
